FAERS Safety Report 9309482 (Version 1)
Quarter: 2013Q2

REPORT INFORMATION
  Report Type: Spontaneous
  Country: US (occurrence: US)
  Receive Date: 20130525
  Receipt Date: 20130525
  Transmission Date: 20140414
  Serious: No
  Sender: FDA-Public Use
  Company Number: US-BRISTOL-MYERS SQUIBB COMPANY-18723544

PATIENT
  Age: 47 Year
  Sex: Female
  Weight: 154.2 kg

DRUGS (3)
  1. BYDUREON [Suspect]
     Indication: TYPE 2 DIABETES MELLITUS
     Route: 058
     Dates: start: 201301
  2. METFORMIN HCL [Concomitant]
     Indication: TYPE 2 DIABETES MELLITUS
     Route: 048
  3. GLIPIZIDE [Concomitant]
     Indication: TYPE 2 DIABETES MELLITUS
     Route: 048

REACTIONS (1)
  - Wrong technique in drug usage process [Recovered/Resolved]
